FAERS Safety Report 6671400-4 (Version None)
Quarter: 2010Q2

REPORT INFORMATION
  Report Type: 
  Country: None (occurrence: None)
  Receive Date: 20100407
  Receipt Date: 20100331
  Transmission Date: 20101027
  Serious: Yes (Hospitalization)
  Sender: FDA-Public Use
  Company Number: Z0003743A

PATIENT
  Sex: Female

DRUGS (3)
  1. PAZOPANIB [Suspect]
     Indication: OVARIAN CANCER
     Dosage: 800MG PER DAY
     Route: 048
     Dates: start: 20090903
  2. ONDANSETRON [Concomitant]
     Indication: NAUSEA
     Dosage: 4MG SINGLE DOSE
     Route: 048
     Dates: start: 20100328, end: 20100328
  3. RESPRIM FORTE [Concomitant]
     Indication: PRODUCTIVE COUGH
     Dosage: 1TAB TWICE PER DAY
     Route: 048
     Dates: start: 20100301, end: 20100301

REACTIONS (1)
  - VIRAL INFECTION [None]
